FAERS Safety Report 6003961-2 (Version None)
Quarter: 2008Q4

REPORT INFORMATION
  Report Type: 
  Country: None (occurrence: None)
  Receive Date: 20081212
  Receipt Date: 20081204
  Transmission Date: 20090506
  Serious: Yes (Hospitalization, Other)
  Sender: FDA-Public Use
  Company Number: 2008SP025004

PATIENT
  Age: 87 Year
  Sex: Female

DRUGS (16)
  1. DIAFUSOR (GLYCERYL TRINITRATE) (GLYCERYL TRINITRATE) [Suspect]
     Indication: DRUG USE FOR UNKNOWN INDICATION
     Dosage: 5 MG; QD;CUT
  2. LASIX [Suspect]
     Indication: DRUG USE FOR UNKNOWN INDICATION
     Dosage: 40 MG;QOD
  3. BUMETANIDE [Suspect]
     Indication: DRUG USE FOR UNKNOWN INDICATION
     Dosage: 5 MG; QD; PO
     Route: 048
  4. INDAPAMIDE [Concomitant]
     Indication: DRUG USE FOR UNKNOWN INDICATION
     Dosage: 1.5 MG; QD;PO
     Route: 048
     Dates: end: 20070531
  5. AMLODIPINE BESYLATE [Suspect]
     Indication: DRUG USE FOR UNKNOWN INDICATION
     Dosage: 5 MG; QD; PO
     Route: 048
  6. LISINOPRIL [Suspect]
     Indication: DRUG USE FOR UNKNOWN INDICATION
     Dosage: 20 MG; QD; PO
     Route: 048
  7. SECTRAL [Suspect]
     Indication: DRUG USE FOR UNKNOWN INDICATION
     Dosage: 300 MG; PO
     Route: 048
  8. SEROPRAM [Concomitant]
  9. LEXOMIL [Concomitant]
  10. KARDEGIC [Concomitant]
  11. VASTAREL [Concomitant]
  12. ELISOR [Concomitant]
  13. DIGOXIN [Concomitant]
  14. ACARBOSE [Concomitant]
  15. DIAMICRON [Concomitant]
  16. ALLOPURINOL [Concomitant]

REACTIONS (3)
  - FALL [None]
  - MALAISE [None]
  - RENAL FAILURE [None]
